FAERS Safety Report 4630847-8 (Version None)
Quarter: 2005Q2

REPORT INFORMATION
  Report Type: 
  Country: None (occurrence: None)
  Receive Date: 20050405
  Receipt Date: 20050405
  Transmission Date: 20051028
  Serious: Yes (Hospitalization)
  Sender: FDA-Public Use
  Company Number: None

PATIENT
  Sex: Female
  Weight: 47.6277 kg

DRUGS (18)
  1. FORTEO [Suspect]
     Indication: FRACTURE
     Dosage: 20 MCG DAILY SUBCUTANEOUS
     Route: 058
     Dates: start: 20041229, end: 20050226
  2. FORTEO [Suspect]
     Indication: OSTEOPOROSIS
     Dosage: 20 MCG DAILY SUBCUTANEOUS
     Route: 058
     Dates: start: 20041229, end: 20050226
  3. VIVELLE [Concomitant]
  4. ADVAIR DISKUS 100/50 [Concomitant]
  5. SALAGEN [Concomitant]
  6. NEXIUM [Concomitant]
  7. CLARITIN [Concomitant]
  8. STRATTERA [Concomitant]
  9. ATACAND [Concomitant]
  10. DILTIAZEM [Concomitant]
  11. NEURONTIN [Concomitant]
  12. EFFEXOR [Concomitant]
  13. LEVOXYL [Concomitant]
  14. MOBIC [Concomitant]
  15. IMIPRAMINE [Concomitant]
  16. CITRACAL [Concomitant]
  17. B-12 [Concomitant]
  18. SINGULAIR [Concomitant]

REACTIONS (20)
  - ABDOMINAL PAIN UPPER [None]
  - ACUTE MYOCARDIAL INFARCTION [None]
  - ANGINA PECTORIS [None]
  - ASTHENIA [None]
  - BLOOD PRESSURE SYSTOLIC DECREASED [None]
  - CHEST DISCOMFORT [None]
  - CHEST PAIN [None]
  - DISCOMFORT [None]
  - DRUG EFFECT DECREASED [None]
  - DRUG INEFFECTIVE [None]
  - DYSPNOEA [None]
  - FATIGUE [None]
  - HEADACHE [None]
  - MIGRAINE [None]
  - NAUSEA [None]
  - PALLOR [None]
  - SEDATION [None]
  - SELF-MEDICATION [None]
  - SYNCOPE [None]
  - VOMITING [None]
